FAERS Safety Report 10051631 (Version 1)
Quarter: 2014Q1

REPORT INFORMATION
  Report Type: Spontaneous
  Country: US (occurrence: None)
  Receive Date: 20140331
  Receipt Date: 20140331
  Transmission Date: 20141002
  Serious: Yes (Hospitalization)
  Sender: FDA-Public Use
  Company Number: 13554945

PATIENT
  Sex: Female

DRUGS (4)
  1. REGLAN [Suspect]
     Indication: NAUSEA
     Dosage: 1 TABLET ORALLY EVERY 8 HOURS
     Route: 048
     Dates: start: 201401
  2. REGLAN [Suspect]
     Indication: VOMITING
     Dosage: 1 TABLET ORALLY EVERY 8 HOURS
     Route: 048
     Dates: start: 201401
  3. ZOFRAN [Concomitant]
  4. COMPAZINE [Concomitant]

REACTIONS (3)
  - Drug ineffective [None]
  - Nausea [None]
  - Vomiting [None]
